FAERS Safety Report 10628146 (Version 1)
Quarter: 2014Q4

REPORT INFORMATION
  Report Type: Spontaneous
  Country: US (occurrence: US)
  Receive Date: 20141205
  Receipt Date: 20141205
  Transmission Date: 20150529
  Serious: No
  Sender: FDA-Public Use
  Company Number: US-BRISTOL-MYERS SQUIBB COMPANY-21400015

PATIENT
  Age: 74 Year
  Sex: Female
  Weight: 67.57 kg

DRUGS (1)
  1. COUMADIN [Suspect]
     Active Substance: WARFARIN SODIUM
     Indication: ARRHYTHMIA

REACTIONS (2)
  - Anaemia [Unknown]
  - Glycosylated haemoglobin increased [Unknown]
